FAERS Safety Report 4805668-3 (Version None)
Quarter: 2005Q4

REPORT INFORMATION
  Report Type: 
  Country: None (occurrence: None)
  Receive Date: 20051021
  Receipt Date: 20050525
  Transmission Date: 20060501
  Serious: Yes (Death, Hospitalization)
  Sender: FDA-Public Use
  Company Number: CA-ROCHE-405960

PATIENT
  Age: 70 Year
  Sex: Male
  Weight: 78 kg

DRUGS (2)
  1. CAPECITABINE [Suspect]
     Indication: COLORECTAL CANCER
     Dosage: 2 WEEK TREATMENT AND 1 WEEK REST.
     Route: 048
     Dates: start: 20050412, end: 20050509
  2. ERLOTINIB [Suspect]
     Indication: COLORECTAL CANCER
     Route: 048
     Dates: start: 20050412, end: 20050509

REACTIONS (2)
  - DEHYDRATION [None]
  - DIARRHOEA [None]
